FAERS Safety Report 8838005 (Version 2)
Quarter: 2013Q4

REPORT INFORMATION
  Report Type: Spontaneous
  Country: GB (occurrence: GB)
  Receive Date: 20121012
  Receipt Date: 20131007
  Transmission Date: 20140711
  Serious: Yes (Other)
  Sender: FDA-Public Use
  Company Number: GB-ROCHE-1144482

PATIENT
  Age: 50 Year
  Sex: Male
  Weight: 90 kg

DRUGS (3)
  1. NAPROXEN [Suspect]
     Indication: EPICONDYLITIS
     Route: 048
     Dates: start: 20120903, end: 20120927
  2. CLOMIPRAMIN [Concomitant]
     Route: 048
     Dates: start: 20120119
  3. IBUPROFEN [Concomitant]

REACTIONS (1)
  - Contusion [Not Recovered/Not Resolved]
